FAERS Safety Report 13066135 (Version 1)
Quarter: 2016Q4

REPORT INFORMATION
  Report Type: Spontaneous
  Country: SI (occurrence: SI)
  Receive Date: 20161227
  Receipt Date: 20161227
  Transmission Date: 20170207
  Serious: Yes (Hospitalization, Other)
  Sender: FDA-Public Use
  Company Number: SI-BAYER-2016-240588

PATIENT
  Sex: Female

DRUGS (7)
  1. ASPIRIN PROTECT 100 MG [Suspect]
     Active Substance: ASPIRIN
     Dosage: UNK
     Dates: start: 20160315, end: 201605
  2. CONCOR [Concomitant]
     Active Substance: BISOPROLOL FUMARATE
     Dosage: 3.75 MG, OM
  3. MICARDIS [Concomitant]
     Active Substance: TELMISARTAN
     Dosage: 80 MG, OM
  4. EDEMID [Concomitant]
     Active Substance: FUROSEMIDE
  5. PANTOPRAZOLE SODIUM. [Concomitant]
     Active Substance: PANTOPRAZOLE SODIUM
     Dosage: 20 MG, OM
  6. LACIPIL [Concomitant]
     Active Substance: LACIDIPINE
     Dosage: 4 MG, OM
  7. XARELTO [Suspect]
     Active Substance: RIVAROXABAN
     Indication: ATRIAL FIBRILLATION
     Dosage: 15 MG, OM
     Dates: start: 201507, end: 201603

REACTIONS (12)
  - Constipation [None]
  - Post procedural haematuria [None]
  - Fistula [None]
  - Abdominal pain [None]
  - Mallory-Weiss syndrome [None]
  - Oesophageal haemorrhage [None]
  - Cardiac failure [None]
  - Nephrostomy [None]
  - Haematemesis [None]
  - Polyuria [None]
  - Hydronephrosis [None]
  - Urosepsis [None]

NARRATIVE: CASE EVENT DATE: 20151209
